FAERS Safety Report 5821323-5 (Version None)
Quarter: 2008Q3

REPORT INFORMATION
  Report Type: 
  Country: None (occurrence: None)
  Receive Date: 20080724
  Receipt Date: 20080714
  Transmission Date: 20090109
  Serious: Yes (Other)
  Sender: FDA-Public Use
  Company Number: US-MERCK-0706USA02104

PATIENT
  Age: 57 Year
  Sex: Male

DRUGS (5)
  1. FOSAMAX [Suspect]
     Indication: BONE DISORDER
     Route: 048
     Dates: start: 20020903, end: 20040901
  2. FOSAMAX [Suspect]
     Route: 065
     Dates: start: 20020601, end: 20020801
  3. FOSAMAX [Suspect]
     Indication: OSTEOARTHRITIS
     Route: 048
     Dates: start: 20020903, end: 20040901
  4. FOSAMAX [Suspect]
     Route: 065
     Dates: start: 20020601, end: 20020801
  5. DIOVAN [Concomitant]
     Indication: HYPERTENSION
     Route: 065
     Dates: start: 20020606

REACTIONS (20)
  - BLINDNESS UNILATERAL [None]
  - COUGH [None]
  - DEPRESSION [None]
  - DIABETES MELLITUS [None]
  - DIPLOPIA [None]
  - DRUG HYPERSENSITIVITY [None]
  - DYSPNOEA EXERTIONAL [None]
  - EXOSTOSIS [None]
  - EYE DISCHARGE [None]
  - EYE IRRITATION [None]
  - EYE PAIN [None]
  - HALO VISION [None]
  - HYPERLIPIDAEMIA [None]
  - MELAENA [None]
  - MIGRAINE [None]
  - PHOTOPHOBIA [None]
  - POOR DENTAL CONDITION [None]
  - RASH [None]
  - RENAL FAILURE CHRONIC [None]
  - TOOTH LOSS [None]
